FAERS Safety Report 4696695-8 (Version None)
Quarter: 2005Q2

REPORT INFORMATION
  Report Type: 
  Country: None (occurrence: None)
  Receive Date: 20050620
  Receipt Date: 20050603
  Transmission Date: 20051028
  Serious: Yes (Hospitalization)
  Sender: FDA-Public Use
  Company Number: 232299K05USA

PATIENT
  Sex: Female

DRUGS (1)
  1. REBIF [Suspect]
     Indication: MULTIPLE SCLEROSIS
     Dosage: 44 MCG
     Dates: start: 20031201, end: 20041101

REACTIONS (6)
  - DRUG HYPERSENSITIVITY [None]
  - INJECTION SITE DISCOLOURATION [None]
  - INJECTION SITE PAIN [None]
  - INJECTION SITE REACTION [None]
  - PSEUDOMONAS INFECTION [None]
  - STAPHYLOCOCCAL INFECTION [None]
